FAERS Safety Report 13701712 (Version 1)
Quarter: 2017Q2

REPORT INFORMATION
  Report Type: Report from Study
  Country: CH (occurrence: CH)
  Receive Date: 20170629
  Receipt Date: 20170629
  Transmission Date: 20170830
  Serious: Yes (Hospitalization, Other)
  Sender: FDA-Public Use
  Company Number: PHHY2017CH003861

PATIENT
  Sex: Male
  Weight: 83 kg

DRUGS (2)
  1. CO-DIOVAN [Suspect]
     Active Substance: HYDROCHLOROTHIAZIDE\VALSARTAN
     Indication: PRODUCT USED FOR UNKNOWN INDICATION
     Route: 065
     Dates: start: 1983, end: 2013
  2. DIOVAN [Suspect]
     Active Substance: VALSARTAN
     Indication: PRODUCT USED FOR UNKNOWN INDICATION
     Dosage: UNK
     Route: 065
     Dates: start: 2013, end: 201702

REACTIONS (19)
  - Dyspnoea [Unknown]
  - Chronic kidney disease [Unknown]
  - Musculoskeletal pain [Unknown]
  - Asthenia [Unknown]
  - Anxiety [Unknown]
  - Oedema peripheral [Unknown]
  - Ventricular tachycardia [Unknown]
  - Back pain [Unknown]
  - Oedema peripheral [Recovered/Resolved]
  - Loss of consciousness [Unknown]
  - Fatigue [Unknown]
  - Orthopnoea [Unknown]
  - Nocturia [Not Recovered/Not Resolved]
  - Depression [Unknown]
  - Psychiatric symptom [Unknown]
  - Angina pectoris [Unknown]
  - Cardiac failure chronic [Not Recovered/Not Resolved]
  - Pulmonary oedema [Unknown]
  - Atrial fibrillation [Unknown]

NARRATIVE: CASE EVENT DATE: 2002
